FAERS Safety Report 4556817-6 (Version None)
Quarter: 2005Q1

REPORT INFORMATION
  Report Type: 
  Country: None (occurrence: None)
  Receive Date: 20050120
  Receipt Date: 20050113
  Transmission Date: 20050727
  Serious: Yes (Other)
  Sender: FDA-Public Use
  Company Number: US-BRISTOL-MYERS SQUIBB COMPANY-12824728

PATIENT
  Age: 40 Year
  Sex: Female
  Weight: 94 kg

DRUGS (6)
  1. EFAVIRENZ [Suspect]
     Indication: HIV INFECTION
     Dates: start: 20010416
  2. TRIZIVIR [Suspect]
     Indication: HIV INFECTION
     Dosage: 300/150/300
     Dates: start: 20010416
  3. BLINDED: COMBIVIR [Suspect]
     Indication: HIV INFECTION
     Dosage: 150/300
     Dates: start: 20010416
  4. BLINDED: PLACEBO [Suspect]
  5. ALEVE [Concomitant]
  6. MULTI-VITAMIN [Concomitant]

REACTIONS (1)
  - LOW DENSITY LIPOPROTEIN INCREASED [None]
